FAERS Safety Report 23258745 (Version 1)
Quarter: 2023Q4

REPORT INFORMATION
  Report Type: Spontaneous
  Country: US (occurrence: None)
  Receive Date: 20231203
  Receipt Date: 20231203
  Transmission Date: 20240110
  Serious: No
  Sender: FDA-Public Use
  Company Number: None

PATIENT
  Age: 24 Year
  Sex: Male
  Weight: 76.5 kg

DRUGS (4)
  1. BUPROPION [Suspect]
     Active Substance: BUPROPION
     Indication: Depression
     Dosage: OTHER QUANTITY : 1 TABLET(S);?
     Route: 048
     Dates: start: 20231101
  2. Stratera 18mg once daily [Concomitant]
  3. 50billion cfu probiotic [Concomitant]
  4. men^s multivitamin [Concomitant]

REACTIONS (3)
  - Migraine with aura [None]
  - Hypertension [None]
  - Visual impairment [None]

NARRATIVE: CASE EVENT DATE: 20231115
